FAERS Safety Report 19475840 (Version 2)
Quarter: 2021Q3

REPORT INFORMATION
  Report Type: Report from Study
  Country: AT (occurrence: AT)
  Receive Date: 20210630
  Receipt Date: 20210713
  Transmission Date: 20211014
  Serious: Yes (Other)
  Sender: FDA-Public Use
  Company Number: AT-AMGEN-AUTNI2021099676

PATIENT

DRUGS (31)
  1. PACLITAXEL ALBUMIN [Suspect]
     Active Substance: PACLITAXEL
     Indication: BREAST CANCER
     Dosage: 142.11 MG, EVERY 1 WEEK (MOST RECENT DOSE PRIOR TO THE EVENT: 19/OCT/2018)
     Route: 042
     Dates: start: 20180928
  2. TAMOXIFEN [Suspect]
     Active Substance: TAMOXIFEN
     Indication: BREAST CANCER
     Dosage: 20 MILLIGRAM
     Route: 048
     Dates: start: 20190819
  3. GUTTALAX [SODIUM PICOSULFATE] [Concomitant]
     Active Substance: SODIUM PICOSULFATE
     Dosage: UNK
     Dates: start: 20191115
  4. NOVALGINA [Concomitant]
     Active Substance: METAMIZOLE SODIUM
     Dosage: ONGOING = NOT CHECKED
     Dates: start: 20181126, end: 20191103
  5. CIPROXINE [CIPROFLOXACIN] [Concomitant]
     Indication: GASTROENTERITIS RADIATION
     Dosage: ONGOING = NOT CHECKED
     Dates: start: 20181118
  6. TEMESTA [LORAZEPAM] [Concomitant]
     Active Substance: LORAZEPAM
     Dosage: ONGOING = CHECKED
  7. PALBOCICLIB [Suspect]
     Active Substance: PALBOCICLIB
     Indication: BREAST CANCER
     Dosage: 125 MILLIGRAM (MOST RECENT DOSE 18/OCT/2019)
     Route: 048
     Dates: start: 20190919
  8. VENDAL [MORPHINE SULFATE] [Concomitant]
     Indication: DYSPNOEA
     Dosage: UNK
     Dates: start: 20191111
  9. PARKEMED [Concomitant]
     Active Substance: MEFENAMIC ACID
     Indication: ARTHRALGIA
     Dosage: ONGOING = CHECKED
     Dates: start: 20180914
  10. AVELOX [Concomitant]
     Active Substance: MOXIFLOXACIN HYDROCHLORIDE
     Indication: OSTEONECROSIS OF JAW
     Dosage: ONGOING = NOT CHECKED
     Dates: start: 20190919, end: 20191101
  11. FULVESTRANT. [Suspect]
     Active Substance: FULVESTRANT
     Indication: BREAST CANCER
     Dosage: 500 MILLIGRAM, Q4WEEKS
     Route: 030
     Dates: start: 20190919
  12. CEOLAT [Concomitant]
     Dosage: UNK
     Dates: start: 20191115
  13. PASPERTIN [METOCLOPRAMIDE HYDROCHLORIDE] [Concomitant]
     Active Substance: METOCLOPRAMIDE HYDROCHLORIDE
     Indication: NAUSEA
     Dosage: UNK
     Dates: start: 20191108, end: 20191115
  14. PANTOLOC [Concomitant]
     Active Substance: PANTOPRAZOLE SODIUM
     Indication: ABDOMINAL PAIN UPPER
     Dosage: ONGOING = NOT CHECKED
     Dates: start: 20181109, end: 20191101
  15. SERACTIL [Concomitant]
     Active Substance: DEXIBUPROFEN
     Indication: OSTEONECROSIS OF JAW
     Dosage: UNK
     Dates: start: 20190725, end: 20191015
  16. FORTECORTIN [DEXAMETHASONE] [Concomitant]
     Active Substance: DEXAMETHASONE
     Dosage: UNK
     Dates: start: 20191115
  17. TRASTUZUMAB. [Suspect]
     Active Substance: TRASTUZUMAB
     Indication: BREAST CANCER
     Dosage: 384 MG EVERY 3 WEEKS (MOST RECENT DOSE PRIOR TO THE EVENT: 19/AUG/2019)
     Route: 042
     Dates: start: 20180810, end: 20180831
  18. ANTIFLAT [Concomitant]
     Dosage: ONGOING = CHECKED
     Dates: start: 20181126
  19. MOLAXOLE [Concomitant]
     Active Substance: POLYETHYLENE GLYCOL 3350\POTASSIUM CHLORIDE\SODIUM BICARBONATE\SODIUM CHLORIDE
     Dosage: UNK
     Dates: start: 20191115
  20. TRASTUZUMAB. [Suspect]
     Active Substance: TRASTUZUMAB
     Dosage: 384 MG EVERY 3 WEEKS
     Route: 042
     Dates: start: 20180928, end: 20180928
  21. TRITTICO [Concomitant]
     Active Substance: TRAZODONE HYDROCHLORIDE
     Dosage: UNK (ONGOING = CHECKED)
  22. ENTEROBENE [Concomitant]
     Indication: DIARRHOEA
     Dosage: ONGOING = CHECKED
     Dates: start: 20181127
  23. MYCOSTATIN [Concomitant]
     Active Substance: NYSTATIN
     Indication: MUCOSAL INFLAMMATION
     Dosage: ONGOING = NOT CHECKED
     Dates: start: 20190819
  24. TAZONAM [Concomitant]
     Active Substance: TAZOBACTAM
     Indication: INFECTION
     Dosage: ONGOING = NOT CHECKED
     Dates: start: 20191102, end: 20191113
  25. TRASTUZUMAB. [Suspect]
     Active Substance: TRASTUZUMAB
     Dosage: 276 MG EVERY 3 WEEKS
     Route: 042
     Dates: start: 20181019
  26. TRASTUZUMAB EMTANSINE [Suspect]
     Active Substance: ADO-TRASTUZUMAB EMTANSINE
     Indication: BREAST CANCER
     Dosage: 154 MG EVERY 3 WEEKS
     Route: 042
     Dates: start: 20190704, end: 20190704
  27. LETROZOLE. [Suspect]
     Active Substance: LETROZOLE
     Indication: BREAST CANCER
     Dosage: 2.5 MILLIGRAM, QD (ON 13/JUN/2019, MOST RECENT DOSE)
     Route: 048
     Dates: start: 20181029
  28. PERTUZUMAB. [Suspect]
     Active Substance: PERTUZUMAB
     Indication: BREAST CANCER
     Dosage: 840 MILLIGRAM EVERY 3 WEEKS (MOST RECENT DOSE PRIOR TO THE EVENT: 31/AUG/2018)
     Route: 042
     Dates: start: 20180810
  29. PACLITAXEL. [Suspect]
     Active Substance: PACLITAXEL
     Indication: BREAST CANCER
     Dosage: 113.69 MILLIGRAM, EVERY 1 WEEK (MOST RECENT DOSE 14/SEP/2018)
     Route: 042
     Dates: start: 20180810
  30. KONAKION [Concomitant]
     Active Substance: PHYTONADIONE
     Dosage: UNK
     Dates: start: 20191115
  31. LASIX [Concomitant]
     Active Substance: FUROSEMIDE
     Indication: OEDEMA PERIPHERAL
     Dosage: UNK
     Dates: start: 20191106, end: 20191115

REACTIONS (5)
  - White blood cell count decreased [Recovered/Resolved]
  - Overdose [Unknown]
  - Ascites [Recovering/Resolving]
  - Underdose [Unknown]
  - Neutrophil count decreased [Recovered/Resolved]

NARRATIVE: CASE EVENT DATE: 20191004
